FAERS Safety Report 5092334-5 (Version None)
Quarter: 2006Q3

REPORT INFORMATION
  Report Type: 
  Country: None (occurrence: None)
  Receive Date: 20060825
  Receipt Date: 20060811
  Transmission Date: 20061208
  Serious: Yes (Other)
  Sender: FDA-Public Use
  Company Number: USA030435823

PATIENT
  Age: 56 Year
  Sex: Female

DRUGS (11)
  1. FORTEO [Suspect]
     Indication: OSTEOPOROSIS
     Dosage: 20 UG, DAILY (1/D),
     Dates: start: 20030425, end: 20050401
  2. FORTEO PEN, 250MCG/ML (3ML) (FORTEO PEN 250MCG/ML (3ML)) PEN, DISPOSAB [Concomitant]
  3. FORTEO PEN, 250MCG/ML (3ML) (FORTEO PEN 250MCG/ML (3ML)) PEN, DISPOSAB [Concomitant]
  4. FORTEO PEN, 250MCG/ML (3ML) (FORTEO PEN 250MCG/ML (3ML)) PEN, DISPOSAB [Concomitant]
  5. DEMEROL [Concomitant]
  6. ACETAMINOPHEN [Concomitant]
  7. PREMARIN [Concomitant]
  8. ZYRTEC [Concomitant]
  9. MULTI-VITAMINS [Concomitant]
  10. ASPIRIN [Concomitant]
  11. MORPHINE [Concomitant]

REACTIONS (17)
  - ABNORMAL SENSATION IN EYE [None]
  - ALOPECIA [None]
  - BLOOD PRESSURE INCREASED [None]
  - BONE DENSITY DECREASED [None]
  - CONTUSION [None]
  - FALL [None]
  - FATIGUE [None]
  - HEADACHE [None]
  - HEART RATE INCREASED [None]
  - HYPOTRICHOSIS [None]
  - INJECTION SITE PAIN [None]
  - NASOPHARYNGITIS [None]
  - NEPHROLITHIASIS [None]
  - OCULAR HYPERAEMIA [None]
  - POLLAKIURIA [None]
  - SARCOIDOSIS [None]
  - VITAMIN D DECREASED [None]
